FAERS Safety Report 6470601-8 (Version None)
Quarter: 2009Q4

REPORT INFORMATION
  Report Type: 
  Country: None (occurrence: None)
  Receive Date: 20091203
  Receipt Date: 20090105
  Transmission Date: 20100525
  Serious: No
  Sender: FDA-Public Use
  Company Number: US-ABBOTT-09P-163-0495956-00

PATIENT
  Sex: Female
  Weight: 82.628 kg

DRUGS (2)
  1. MERIDIA [Suspect]
     Indication: WEIGHT DECREASED
     Route: 048
     Dates: start: 20060101, end: 20061101
  2. MERIDIA [Suspect]
     Route: 048
     Dates: start: 20081222

REACTIONS (1)
  - DRUG INEFFECTIVE [None]
